FAERS Safety Report 17185961 (Version 1)
Quarter: 2019Q4

REPORT INFORMATION
  Report Type: Spontaneous
  Country: US (occurrence: US)
  Receive Date: 20191220
  Receipt Date: 20191220
  Transmission Date: 20200122
  Serious: Yes (Other)
  Sender: FDA-Public Use
  Company Number: US-MYLANLABS-2019M1127520

PATIENT
  Sex: Female

DRUGS (1)
  1. MAGNESIUM [Suspect]
     Active Substance: MAGNESIUM
     Indication: SEIZURE PROPHYLAXIS
     Dosage: UNK
     Route: 042

REACTIONS (3)
  - Drug level below therapeutic [Unknown]
  - Maternal exposure during delivery [Recovered/Resolved]
  - Product administration error [Unknown]
